FAERS Safety Report 13699465 (Version 2)
Quarter: 2017Q3

REPORT INFORMATION
  Report Type: Spontaneous
  Country: JP (occurrence: JP)
  Receive Date: 20170628
  Receipt Date: 20170706
  Transmission Date: 20171127
  Serious: Yes (Other)
  Sender: FDA-Public Use
  Company Number: JP-AMGEN-JPNSP2017098674

PATIENT
  Sex: Female

DRUGS (2)
  1. XELODA [Concomitant]
     Active Substance: CAPECITABINE
     Dosage: UNK
     Route: 048
  2. G-LASTA [Suspect]
     Active Substance: PEGFILGRASTIM
     Indication: PRODUCT USED FOR UNKNOWN INDICATION
     Dosage: UNK
     Route: 058

REACTIONS (2)
  - Chemotherapy [Unknown]
  - Off label use [Unknown]
